FAERS Safety Report 5218246-1 (Version None)
Quarter: 2007Q1

REPORT INFORMATION
  Report Type: 
  Country: None (occurrence: None)
  Receive Date: 20070124
  Receipt Date: 20070115
  Transmission Date: 20070707
  Serious: Yes (Other)
  Sender: FDA-Public Use
  Company Number: FR-PFIZER INC-2006117658

PATIENT
  Sex: Female

DRUGS (3)
  1. ZOLOFT [Suspect]
     Indication: DEPRESSION
     Dosage: DAILY DOSE:75MG-TEXT:25 AND 50 MG-FREQ:DAILY
     Route: 048
  2. ZOLOFT [Suspect]
     Indication: ANXIETY
  3. BROMAZEPAM [Concomitant]
     Route: 048
     Dates: start: 20060726

REACTIONS (3)
  - DYSGEUSIA [None]
  - HAEMOPTYSIS [None]
  - MOUTH HAEMORRHAGE [None]
